FAERS Safety Report 7585804-9 (Version None)
Quarter: 2011Q3

REPORT INFORMATION
  Report Type: 
  Country: None (occurrence: None)
  Receive Date: 20110701
  Receipt Date: 20110628
  Transmission Date: 20111222
  Serious: Yes (Hospitalization)
  Sender: FDA-Public Use
  Company Number: JP-SANOFI-AVENTIS-200811338JP

PATIENT
  Age: 72 Year
  Sex: Female
  Weight: 56.3 kg

DRUGS (5)
  1. DORAL [Concomitant]
  2. LAXOBERON [Concomitant]
  3. PATANOL [Concomitant]
     Route: 031
     Dates: start: 20080207, end: 20080219
  4. ALLEGRA [Suspect]
     Route: 048
     Dates: start: 20080207, end: 20080219
  5. MAGNESIUM OXIDE [Concomitant]

REACTIONS (1)
  - ATRIOVENTRICULAR BLOCK COMPLETE [None]
